FAERS Safety Report 25681575 (Version 3)
Quarter: 2025Q3

REPORT INFORMATION
  Report Type: Spontaneous
  Country: US (occurrence: US)
  Receive Date: 20250814
  Receipt Date: 20250910
  Transmission Date: 20251021
  Serious: No
  Sender: LUPIN
  Company Number: US-LUPIN PHARMACEUTICALS INC.-2025-07080

PATIENT
  Age: 77 Year
  Weight: 95 kg

DRUGS (1)
  1. ARFORMOTEROL TARTRATE [Suspect]
     Active Substance: ARFORMOTEROL TARTRATE
     Indication: Chronic obstructive pulmonary disease
     Dosage: ONE VIAL IN NEBULIZER EVERY 12 HOURS (9 AM IN THE MORNING AND 9 PM IN THE NIGHT)

REACTIONS (2)
  - Oxygen saturation decreased [Unknown]
  - Incorrect dose administered [Unknown]
